FAERS Safety Report 4924709-6 (Version None)
Quarter: 2006Q1

REPORT INFORMATION
  Report Type: 
  Country: None (occurrence: None)
  Receive Date: 20060222
  Receipt Date: 20030309
  Transmission Date: 20060701
  Serious: Yes (Hospitalization, Other)
  Sender: FDA-Public Use
  Company Number: KII-2003-0003745

PATIENT
  Age: 42 Year
  Sex: Male

DRUGS (5)
  1. OXYCONTIN [Suspect]
     Dosage: ORAL
     Route: 048
  2. DARVOCET [Suspect]
  3. ALCOHOL (ETHANOL) [Suspect]
  4. MARIJUANA (CANNABIS) [Suspect]
  5. BARBITURATES [Suspect]

REACTIONS (4)
  - BLOOD ALCOHOL INCREASED [None]
  - COMA [None]
  - DRUG SCREEN POSITIVE [None]
  - RESPIRATORY ARREST [None]
